FAERS Safety Report 23577734 (Version 1)
Quarter: 2024Q1

REPORT INFORMATION
  Report Type: Spontaneous
  Country: PH (occurrence: PH)
  Receive Date: 20240228
  Receipt Date: 20240228
  Transmission Date: 20240409
  Serious: Yes (Other)
  Sender: FDA-Public Use
  Company Number: PH-BoehringerIngelheim-2024-BI-008726

PATIENT
  Age: 38 Year
  Sex: Male
  Weight: 60 kg

DRUGS (6)
  1. ALTEPLASE [Suspect]
     Active Substance: ALTEPLASE
     Indication: Cerebral infarction
     Dosage: 5 ML BOLUS DOSE 45 ML INFUSION FOR 1 HR
     Route: 065
     Dates: start: 20240215
  2. FENTANYL [Concomitant]
     Active Substance: FENTANYL\FENTANYL CITRATE
     Dosage: 50 MCG
     Route: 042
  3. NICARDIPINE [Concomitant]
     Active Substance: NICARDIPINE
  4. LOSARTAN [Concomitant]
     Active Substance: LOSARTAN
  5. CLONIDINE [Concomitant]
     Active Substance: CLONIDINE
  6. MANNITOL [Concomitant]
     Active Substance: MANNITOL

REACTIONS (4)
  - Haemorrhagic transformation stroke [Recovering/Resolving]
  - Hemiplegia [Recovering/Resolving]
  - Headache [Recovering/Resolving]
  - Hypertension [Recovering/Resolving]

NARRATIVE: CASE EVENT DATE: 20240215
